FAERS Safety Report 12293214 (Version 1)
Quarter: 2016Q2

REPORT INFORMATION
  Report Type: Report from Study
  Country: DE (occurrence: KR)
  Receive Date: 20160421
  Receipt Date: 20160421
  Transmission Date: 20160815
  Serious: Yes (Death, Hospitalization, Other)
  Sender: FDA-Public Use
  Company Number: DE-ACTELION-A-US2016-134920

PATIENT
  Age: 76 Year
  Sex: Female

DRUGS (4)
  1. VENTAVIS [Suspect]
     Active Substance: ILOPROST
     Dosage: UNK, QID
     Route: 055
  2. VENTAVIS [Suspect]
     Active Substance: ILOPROST
     Indication: PULMONARY ARTERIAL HYPERTENSION
     Dosage: 3 ML, TID
     Route: 055
     Dates: start: 20141103, end: 201512
  3. VENTAVIS [Suspect]
     Active Substance: ILOPROST
     Dosage: UNK, Q4HRS
     Route: 055
  4. VENTAVIS [Suspect]
     Active Substance: ILOPROST
     Dosage: 4 ML, Q4HRS
     Route: 055

REACTIONS (17)
  - Fall [Unknown]
  - Arthralgia [Unknown]
  - Musculoskeletal pain [Unknown]
  - Nasopharyngitis [Unknown]
  - Paraesthesia [Unknown]
  - Dizziness [Unknown]
  - Poor quality sleep [Unknown]
  - Pain in extremity [Unknown]
  - Swelling face [Recovered/Resolved]
  - Off label use [Unknown]
  - Nausea [Unknown]
  - Sudden cardiac death [Fatal]
  - Pruritus generalised [Unknown]
  - Pain [Unknown]
  - Hip fracture [Unknown]
  - Dyspnoea [Recovered/Resolved]
  - Cough [Unknown]

NARRATIVE: CASE EVENT DATE: 201512
